FAERS Safety Report 4579450-9 (Version None)
Quarter: 2005Q1

REPORT INFORMATION
  Report Type: 
  Country: None (occurrence: None)
  Receive Date: 20050210
  Receipt Date: 20050210
  Transmission Date: 20050727
  Serious: Yes (Death)
  Sender: FDA-Public Use
  Company Number: None

PATIENT
  Sex: Male
  Weight: 102.3 kg

DRUGS (3)
  1. CYCLOSPORINE [Suspect]
     Dates: start: 20041019
  2. DAUNOMYCIN [Suspect]
  3. CYTARABINE [Suspect]

REACTIONS (2)
  - HYPOXIA [None]
  - PULMONARY MYCOSIS [None]
